FAERS Safety Report 7535779-3 (Version None)
Quarter: 2011Q2

REPORT INFORMATION
  Report Type: 
  Country: None (occurrence: None)
  Receive Date: 20110602
  Receipt Date: 20110523
  Transmission Date: 20111010
  Serious: Yes (Other)
  Sender: FDA-Public Use
  Company Number: 2011S1000168

PATIENT
  Age: 7 Year
  Sex: Female

DRUGS (2)
  1. INOMAX [Suspect]
     Indication: PULMONARY ARTERIAL HYPERTENSION
     Dosage: 40 PPM;CONT; NAS
     Route: 045
  2. SILDENAFIL CITRATE [Concomitant]

REACTIONS (6)
  - HAEMANGIOMA [None]
  - WEIGHT GAIN POOR [None]
  - ANAEMIA [None]
  - PULMONARY HYPERTENSION [None]
  - CAPILLARY DISORDER [None]
  - PULMONARY OEDEMA [None]
